FAERS Safety Report 6467523-5 (Version None)
Quarter: 2009Q4

REPORT INFORMATION
  Report Type: 
  Country: None (occurrence: None)
  Receive Date: 20091127
  Receipt Date: 20091116
  Transmission Date: 20100525
  Serious: Yes (Other)
  Sender: FDA-Public Use
  Company Number: 2009AL007353

PATIENT

DRUGS (2)
  1. VINORELBINE [Suspect]
     Indication: NON-SMALL CELL LUNG CANCER
     Dosage: 30 MG/M**2; QW; IV
     Route: 042
  2. CISPLATIN [Concomitant]

REACTIONS (4)
  - ABDOMINAL PAIN [None]
  - APPENDIX DISORDER [None]
  - NEUTROPENIA [None]
  - VOMITING [None]
